FAERS Safety Report 17209141 (Version 1)
Quarter: 2019Q4

REPORT INFORMATION
  Report Type: Spontaneous
  Country: JP (occurrence: JP)
  Receive Date: 20191227
  Receipt Date: 20191227
  Transmission Date: 20200122
  Serious: Yes (Other)
  Sender: FDA-Public Use
  Company Number: JP-GLAXOSMITHKLINE-JP2019JPN157812

PATIENT
  Age: 51 Year
  Sex: Male
  Weight: 68 kg

DRUGS (9)
  1. SAMTIREL [Suspect]
     Active Substance: ATOVAQUONE
     Indication: PNEUMOCYSTIS JIROVECII PNEUMONIA
     Dosage: 10 ML, BID
     Route: 048
     Dates: start: 20190222, end: 20190301
  2. AMBISOME INJECTION [Concomitant]
     Dosage: UNK
     Dates: start: 20190214, end: 201902
  3. SULFAMETHOXAZOLE/TRIMETHOPRIM TABLETS [Concomitant]
     Active Substance: SULFAMETHOXAZOLE\TRIMETHOPRIM
     Dosage: UNK
  4. CALONAL TABLET [Concomitant]
     Dosage: UNK
  5. RABEPRAZOLE NA TABLETS [Concomitant]
     Dosage: UNK
  6. FLUCONAZOLE CAPSULE [Concomitant]
     Active Substance: FLUCONAZOLE
     Dosage: UNK
     Dates: start: 20190214, end: 201902
  7. ZITHROMAC [Suspect]
     Active Substance: AZITHROMYCIN DIHYDRATE
     Indication: PNEUMOCYSTIS JIROVECII PNEUMONIA
     Dosage: 600 MG, QD
     Route: 048
     Dates: start: 20190226, end: 20190301
  8. VFEND [Suspect]
     Active Substance: VORICONAZOLE
     Dosage: 200 MG, BID
     Route: 048
  9. VFEND [Suspect]
     Active Substance: VORICONAZOLE
     Indication: MENINGITIS CRYPTOCOCCAL
     Dosage: 600 MG, 1D
     Route: 048
     Dates: start: 20190225

REACTIONS (4)
  - Pyrexia [Unknown]
  - Cholestasis [Unknown]
  - Drug-induced liver injury [Recovered/Resolved]
  - Renal disorder [Unknown]

NARRATIVE: CASE EVENT DATE: 20190301
